FAERS Safety Report 5170640-3 (Version None)
Quarter: 2006Q4

REPORT INFORMATION
  Report Type: 
  Country: None (occurrence: None)
  Receive Date: 20061205
  Receipt Date: 20061122
  Transmission Date: 20070319
  Serious: Yes (Other)
  Sender: FDA-Public Use
  Company Number: 2006144465

PATIENT
  Age: 61 Year
  Sex: Female

DRUGS (4)
  1. ZOLOFT [Suspect]
     Dosage: 100 MG (50 MG, 2 IN 1 D)
  2. OXAZEPAM [Concomitant]
  3. AMISULPRIDE                  (AMISULPRIDE) [Concomitant]
  4. TIBOLONE [Concomitant]

REACTIONS (3)
  - ABDOMINAL PAIN [None]
  - CONSTIPATION [None]
  - PROCTITIS HAEMORRHAGIC [None]
